FAERS Safety Report 13315049 (Version 4)
Quarter: 2017Q2

REPORT INFORMATION
  Report Type: Report from Study
  Country: None (occurrence: CA)
  Receive Date: 20170309
  Receipt Date: 20170407
  Transmission Date: 20170830
  Serious: Yes (Hospitalization, Other)
  Sender: FDA-Public Use
  Company Number: CA-ABBVIE-17P-028-1900799-00

PATIENT
  Age: 71 Year
  Sex: Male
  Weight: 115 kg

DRUGS (7)
  1. MODERIBA [Suspect]
     Active Substance: RIBAVIRIN
     Indication: HEPATITIS C
     Route: 048
     Dates: start: 20170131, end: 20170228
  2. HOLKIRA PAK [Suspect]
     Active Substance: DASABUVIR\OMBITASVIR\PARITAPREVIR\RITONAVIR
     Indication: HEPATITIS C
     Route: 048
     Dates: start: 20170131, end: 20170228
  3. AFLIBERCEPT [Concomitant]
     Active Substance: AFLIBERCEPT
     Indication: PRODUCT USED FOR UNKNOWN INDICATION
  4. HOLKIRA PAK [Suspect]
     Active Substance: DASABUVIR\OMBITASVIR\PARITAPREVIR\RITONAVIR
     Dosage: 2 CO-FORMULATED OMB/PAR/RIT TAB 12.5/75/50MG QD, 1 DASABUVIR 250MG BID
     Route: 048
     Dates: start: 201703
  5. CITALOPRAM [Concomitant]
     Active Substance: CITALOPRAM HYDROBROMIDE
     Indication: PRODUCT USED FOR UNKNOWN INDICATION
     Route: 048
  6. MODERIBA [Suspect]
     Active Substance: RIBAVIRIN
     Dosage: TITRATION OF MODERIBA
     Route: 048
     Dates: start: 201703
  7. AMLODIPINE [Concomitant]
     Active Substance: AMLODIPINE BESYLATE
     Indication: PRODUCT USED FOR UNKNOWN INDICATION
     Route: 048

REACTIONS (12)
  - Chest discomfort [Recovered/Resolved]
  - Ventricular tachycardia [Unknown]
  - Blood magnesium decreased [Unknown]
  - Generalised oedema [Recovered/Resolved]
  - Withdrawal syndrome [Unknown]
  - Respiratory alkalosis [Unknown]
  - Tremor [Recovered/Resolved]
  - Blood potassium decreased [Unknown]
  - Abdominal pain [Unknown]
  - Diarrhoea [Unknown]
  - Cardiac fibrillation [Unknown]
  - Dehydration [Unknown]

NARRATIVE: CASE EVENT DATE: 20170228
